FAERS Safety Report 7914203-2 (Version None)
Quarter: 2011Q4

REPORT INFORMATION
  Report Type: 
  Country: None (occurrence: None)
  Receive Date: 20111115
  Receipt Date: 20111110
  Transmission Date: 20120403
  Serious: Yes (Hospitalization)
  Sender: FDA-Public Use
  Company Number: US-BAYER-2011-109651

PATIENT
  Age: 72 Year
  Sex: Male
  Weight: 96 kg

DRUGS (2)
  1. ZETIA [Concomitant]
  2. ASPIRIN [Suspect]
     Indication: ISCHAEMIC HEART DISEASE PROPHYLAXIS
     Dosage: 1 DF, QD
     Route: 048

REACTIONS (3)
  - HAEMORRHOIDAL HAEMORRHAGE [None]
  - GASTRIC ULCER HAEMORRHAGE [None]
  - FAECES DISCOLOURED [None]
